FAERS Safety Report 23726317 (Version 1)
Quarter: 2024Q2

REPORT INFORMATION
  Report Type: Spontaneous
  Country: IR (occurrence: IR)
  Receive Date: 20240410
  Receipt Date: 20240410
  Transmission Date: 20240716
  Serious: Yes (Life-Threatening, Hospitalization, Other)
  Sender: FDA-Public Use
  Company Number: IR-RISINGPHARMA-IR-2024RISLIT00078

PATIENT
  Age: 19 Year
  Sex: Female

DRUGS (3)
  1. BACLOFEN [Suspect]
     Active Substance: BACLOFEN
     Indication: Product used for unknown indication
     Dosage: 20 TABLETS OF 25 MG (500 MG)
     Route: 048
  2. VENLAFAXINE [Concomitant]
     Active Substance: VENLAFAXINE HYDROCHLORIDE
     Indication: Product used for unknown indication
     Route: 065
  3. CLOMIPRAMINE [Concomitant]
     Active Substance: CLOMIPRAMINE
     Indication: Product used for unknown indication
     Route: 065

REACTIONS (10)
  - Loss of consciousness [None]
  - Pneumomediastinum [None]
  - Atelectasis [None]
  - Mania [None]
  - Catatonia [None]
  - Logorrhoea [None]
  - Hallucination, visual [None]
  - Agitation [None]
  - Toxicity to various agents [None]
  - Intentional overdose [Unknown]
